FAERS Safety Report 9788695 (Version 1)
Quarter: 2013Q4

REPORT INFORMATION
  Report Type: Spontaneous
  Country: JP (occurrence: JP)
  Receive Date: 20131230
  Receipt Date: 20131230
  Transmission Date: 20140711
  Serious: Yes (Other)
  Sender: FDA-Public Use
  Company Number: JP-PFIZER INC-2013369345

PATIENT
  Age: 37 Year
  Sex: Male

DRUGS (5)
  1. SELARA [Suspect]
     Dosage: 100 MG, DAILY
     Route: 048
  2. KERLONG [Concomitant]
  3. DIOVAN [Concomitant]
  4. CALBLOCK [Concomitant]
     Dosage: 16 MG, DAILY
  5. NORVASC [Concomitant]
     Dosage: 5 MG, DAILY

REACTIONS (1)
  - Hyperaldosteronism [Unknown]
